FAERS Safety Report 11471194 (Version 2)
Quarter: 2015Q3

REPORT INFORMATION
  Report Type: Spontaneous
  Country: US (occurrence: US)
  Receive Date: 20150903
  Receipt Date: 20150903
  Transmission Date: 20151125
  Serious: No
  Sender: FDA-Public Use
  Company Number: US-ELI_LILLY_AND_COMPANY-US201201007334

PATIENT
  Sex: Female
  Weight: 137.42 kg

DRUGS (9)
  1. EFFEXOR                                 /USA/ [Concomitant]
  2. XANAX                                   /USA/ [Concomitant]
     Dosage: 0.25 MG, QID
  3. LYRICA [Concomitant]
     Active Substance: PREGABALIN
     Dosage: 300 MG, QD
     Dates: end: 201201
  4. CYMBALTA [Suspect]
     Active Substance: DULOXETINE HYDROCHLORIDE
     Indication: DEPRESSION
     Dosage: 60 MG, BID
     Dates: start: 2002, end: 201112
  5. LYRICA [Concomitant]
     Active Substance: PREGABALIN
     Indication: FIBROMYALGIA
     Dosage: UNK UNK, BID
     Dates: start: 2002
  6. INDERAL [Concomitant]
     Active Substance: PROPRANOLOL HYDROCHLORIDE
     Indication: MIGRAINE
     Dosage: UNK
  7. TOPAMAX [Concomitant]
     Active Substance: TOPIRAMATE
  8. XANAX                                   /USA/ [Concomitant]
     Indication: ANXIETY
     Dosage: 0.5 MG, PRN
     Dates: start: 2002
  9. CELEBREX [Concomitant]
     Active Substance: CELECOXIB
     Indication: PAIN

REACTIONS (3)
  - Panic attack [Unknown]
  - Sleep disorder [Not Recovered/Not Resolved]
  - Diabetes mellitus [Unknown]

NARRATIVE: CASE EVENT DATE: 2005
